FAERS Safety Report 20784226 (Version 1)
Quarter: 2022Q2

REPORT INFORMATION
  Report Type: Spontaneous
  Country: US (occurrence: US)
  Receive Date: 20220504
  Receipt Date: 20220504
  Transmission Date: 20220720
  Serious: No
  Sender: FDA-Public Use
  Company Number: US-PFIZER INC-202101443517

PATIENT
  Age: 92 Year
  Sex: Male
  Weight: 60.78 kg

DRUGS (1)
  1. VYNDAMAX [Suspect]
     Active Substance: TAFAMIDIS
     Indication: Amyloidosis
     Dosage: ONCE A DAY IN THE EVENING BEFORE BED

REACTIONS (3)
  - Energy increased [Unknown]
  - Therapeutic response unexpected [Unknown]
  - Product dose omission issue [Unknown]

NARRATIVE: CASE EVENT DATE: 20211022
